FAERS Safety Report 7957939-X (Version None)
Quarter: 2011Q4

REPORT INFORMATION
  Report Type: 
  Country: None (occurrence: None)
  Receive Date: 20111205
  Receipt Date: 20111124
  Transmission Date: 20120403
  Serious: Yes (Death)
  Sender: FDA-Public Use
  Company Number: JP-PFIZER INC-2011294196

PATIENT
  Age: 52 Year
  Sex: Male

DRUGS (6)
  1. FLUOROURACIL [Concomitant]
     Route: 041
  2. CAMPTOSAR [Suspect]
     Indication: COLON CANCER
     Route: 041
  3. OXALIPLATIN [Suspect]
     Indication: COLON CANCER
     Route: 041
  4. LEVOLEUCOVORIN CALCIUM [Concomitant]
     Indication: COLON CANCER
     Route: 041
  5. VECTIBIX [Concomitant]
     Indication: COLON CANCER
     Route: 041
  6. FLUOROURACIL [Concomitant]
     Indication: COLON CANCER
     Route: 040

REACTIONS (2)
  - FEBRILE NEUTROPENIA [None]
  - HYPERSENSITIVITY [None]
